FAERS Safety Report 4526461-5 (Version None)
Quarter: 2004Q4

REPORT INFORMATION
  Report Type: 
  Country: None (occurrence: None)
  Receive Date: 20041214
  Receipt Date: 20041122
  Transmission Date: 20050328
  Serious: Yes (Disabling)
  Sender: FDA-Public Use
  Company Number: US-MERCK-0411USA03578

PATIENT
  Age: 80 Year
  Sex: Female

DRUGS (1)
  1. ZOCOR [Suspect]
     Indication: BLOOD CHOLESTEROL INCREASED
     Route: 048
     Dates: start: 19950101, end: 20040727

REACTIONS (21)
  - ANGINA PECTORIS [None]
  - ANOREXIA [None]
  - ATRIAL FIBRILLATION [None]
  - AUTOIMMUNE THYROIDITIS [None]
  - CHOKING [None]
  - COUGH [None]
  - DRUG TOXICITY [None]
  - DRY MOUTH [None]
  - DYSGEUSIA [None]
  - DYSPHAGIA [None]
  - GAIT DISTURBANCE [None]
  - HEART RATE INCREASED [None]
  - HYPERTHYROIDISM [None]
  - INSOMNIA [None]
  - JOINT SWELLING [None]
  - MUSCULAR WEAKNESS [None]
  - MYALGIA [None]
  - RESPIRATORY RATE INCREASED [None]
  - TREMOR [None]
  - URINARY INCONTINENCE [None]
  - WEIGHT DECREASED [None]
